FAERS Safety Report 4918144-4 (Version None)
Quarter: 2006Q1

REPORT INFORMATION
  Report Type: 
  Country: None (occurrence: None)
  Receive Date: 20060221
  Receipt Date: 20051004
  Transmission Date: 20060701
  Serious: Yes (Hospitalization)
  Sender: FDA-Public Use
  Company Number: US-MERCK-0510USA03987

PATIENT
  Age: 59 Year
  Sex: Male
  Weight: 70 kg

DRUGS (8)
  1. VIOXX [Suspect]
     Indication: BACK PAIN
     Route: 048
     Dates: start: 20010226, end: 20011001
  2. CORMAX (CLOBETASOL PROPIONATE) [Concomitant]
     Route: 065
  3. CORDALIN (BISOPROLOL FUMARATE) [Concomitant]
     Route: 065
  4. NITROSTAT [Concomitant]
     Route: 065
  5. PREVACID [Concomitant]
     Route: 065
  6. ACETAMINOPHEN AND PROPOXYPHENE HYDROCHLORIDE [Concomitant]
     Route: 065
  7. TRIMOX [Concomitant]
     Route: 065
  8. WELLBUTRIN [Concomitant]
     Route: 065

REACTIONS (24)
  - BACTERIAL INFECTION [None]
  - CONSTIPATION [None]
  - CORONARY ARTERY OCCLUSION [None]
  - DEPRESSION [None]
  - DRUG HYPERSENSITIVITY [None]
  - DYSPNOEA [None]
  - EJECTION FRACTION DECREASED [None]
  - ERECTILE DYSFUNCTION [None]
  - FUNGAL INFECTION [None]
  - HEART RATE IRREGULAR [None]
  - HYPERLIPIDAEMIA [None]
  - INFECTION [None]
  - INFLAMMATION [None]
  - INTERMITTENT CLAUDICATION [None]
  - INTERVERTEBRAL DISC PROTRUSION [None]
  - MYOCARDIAL INFARCTION [None]
  - NERVOUSNESS [None]
  - OSTEOARTHRITIS [None]
  - PARKINSONISM [None]
  - PSORIASIS [None]
  - SINUS DISORDER [None]
  - SKIN DISORDER [None]
  - SPINAL OSTEOARTHRITIS [None]
  - VENTRICULAR TACHYCARDIA [None]
